FAERS Safety Report 18302497 (Version 1)
Quarter: 2020Q3

REPORT INFORMATION
  Report Type: Spontaneous
  Country: DE (occurrence: DE)
  Receive Date: 20200923
  Receipt Date: 20200923
  Transmission Date: 20201103
  Serious: Yes (Hospitalization, Other)
  Sender: FDA-Public Use
  Company Number: DE-PFIZER INC-2020362956

PATIENT
  Age: 55 Year
  Sex: Female
  Weight: 55 kg

DRUGS (2)
  1. LORVIQUA [Suspect]
     Active Substance: LORLATINIB
     Indication: ANAPLASTIC LYMPHOMA KINASE GENE MUTATION
  2. LORVIQUA [Suspect]
     Active Substance: LORLATINIB
     Indication: NON-SMALL CELL LUNG CANCER
     Dosage: 100 MG, 1X/DAY
     Route: 048
     Dates: start: 202006, end: 202009

REACTIONS (3)
  - Superinfection bacterial [Unknown]
  - Eosinophilic pneumonia acute [Not Recovered/Not Resolved]
  - Infectious pleural effusion [Unknown]

NARRATIVE: CASE EVENT DATE: 2020
